FAERS Safety Report 6268100-1 (Version None)
Quarter: 2009Q3

REPORT INFORMATION
  Report Type: 
  Country: None (occurrence: None)
  Receive Date: 20090715
  Receipt Date: 20090709
  Transmission Date: 20100115
  Serious: Yes (Hospitalization)
  Sender: FDA-Public Use
  Company Number: US-BIOGENIDEC-2009BI008480

PATIENT
  Age: 51 Year
  Sex: Female

DRUGS (1)
  1. TYSABRI [Suspect]
     Indication: MULTIPLE SCLEROSIS
     Route: 042
     Dates: start: 20071204

REACTIONS (15)
  - BONE PAIN [None]
  - CLOSTRIDIAL INFECTION [None]
  - COLITIS [None]
  - DIARRHOEA [None]
  - HEADACHE [None]
  - HYPONATRAEMIA [None]
  - MUSCULOSKELETAL STIFFNESS [None]
  - NAUSEA [None]
  - NECK PAIN [None]
  - NEUROGENIC BLADDER [None]
  - PAIN [None]
  - PYREXIA [None]
  - RECTAL HAEMORRHAGE [None]
  - SENSORY DISTURBANCE [None]
  - WHITE BLOOD CELL COUNT INCREASED [None]
